FAERS Safety Report 26173058 (Version 2)
Quarter: 2025Q4

REPORT INFORMATION
  Report Type: Report from Study
  Country: CA (occurrence: CA)
  Receive Date: 20251218
  Receipt Date: 20251222
  Transmission Date: 20260118
  Serious: Yes (Hospitalization, Other)
  Sender: JOHNSON AND JOHNSON
  Company Number: CA-JNJFOC-20250332701

PATIENT
  Age: 78 Year
  Sex: Female

DRUGS (1)
  1. SIMPONI [Suspect]
     Active Substance: GOLIMUMAB
     Indication: Rheumatoid arthritis
     Route: 058

REACTIONS (6)
  - Rheumatoid arthritis [Unknown]
  - Hospitalisation [Unknown]
  - Hip surgery [Unknown]
  - Post procedural complication [Unknown]
  - Thermal burn [Unknown]
  - Arthritis infective [Unknown]

NARRATIVE: CASE EVENT DATE: 20251120
